FAERS Safety Report 4666976-2 (Version None)
Quarter: 2005Q2

REPORT INFORMATION
  Report Type: 
  Country: None (occurrence: None)
  Receive Date: 20050516
  Receipt Date: 20050419
  Transmission Date: 20051028
  Serious: Yes (Other)
  Sender: FDA-Public Use
  Company Number: 8008852

PATIENT
  Age: 12 Year
  Sex: Female
  Weight: 34.09 kg

DRUGS (2)
  1. KEPPRA [Suspect]
     Indication: CONVULSION
     Dosage: 1 ML 2/D PO
     Route: 048
     Dates: start: 20050202
  2. KEPPRA [Suspect]
     Indication: CONVULSION
     Dosage: 2.5 ML PO
     Route: 048
     Dates: start: 20050101

REACTIONS (6)
  - ABNORMAL BEHAVIOUR [None]
  - DEPRESSION [None]
  - DYSGEUSIA [None]
  - GAIT DISTURBANCE [None]
  - GRAND MAL CONVULSION [None]
  - SOMNOLENCE [None]
